FAERS Safety Report 6832806-3 (Version None)
Quarter: 2010Q3

REPORT INFORMATION
  Report Type: 
  Country: None (occurrence: None)
  Receive Date: 20100712
  Receipt Date: 20070321
  Transmission Date: 20110219
  Serious: Yes (Hospitalization, Other)
  Sender: FDA-Public Use
  Company Number: US-PFIZER INC-2007024267

PATIENT
  Sex: Female
  Weight: 68 kg

DRUGS (1)
  1. CHANTIX [Suspect]
     Indication: SMOKING CESSATION THERAPY
     Dates: start: 20070225

REACTIONS (10)
  - CHEST PAIN [None]
  - DIARRHOEA [None]
  - DYSPHAGIA [None]
  - DYSPHONIA [None]
  - ELECTROCARDIOGRAM ABNORMAL [None]
  - FLATULENCE [None]
  - HEADACHE [None]
  - INCREASED APPETITE [None]
  - OROPHARYNGEAL PAIN [None]
  - PALPITATIONS [None]
